FAERS Safety Report 9476034 (Version 2)
Quarter: 2013Q3

REPORT INFORMATION
  Report Type: Spontaneous
  Country: JP (occurrence: JP)
  Receive Date: 20130826
  Receipt Date: 20130909
  Transmission Date: 20140515
  Serious: Yes (Hospitalization)
  Sender: FDA-Public Use
  Company Number: JP-VERTEX PHARMACEUTICALS INC-2013-009017

PATIENT
  Age: 68 Year
  Sex: Male

DRUGS (6)
  1. TELAVIC [Suspect]
     Indication: CHRONIC HEPATITIS C
     Dosage: 1500 MG, QD
     Route: 048
     Dates: start: 20130612, end: 20130812
  2. RIBAVIRIN [Suspect]
     Indication: CHRONIC HEPATITIS C
     Dosage: 600 MG, QD
     Route: 048
     Dates: start: 20130612, end: 20130812
  3. PEGINTERFERON ALFA-2B [Suspect]
     Indication: CHRONIC HEPATITIS C
     Dosage: 1.5 ?G/KG, QW
     Route: 058
     Dates: start: 20130612, end: 20130807
  4. ALOSITOL [Suspect]
     Indication: ADVERSE REACTION
     Dosage: 100 MG, QD
     Route: 048
     Dates: start: 20130615, end: 20130619
  5. ALOSITOL [Suspect]
     Dosage: 200 MG, QD
     Route: 048
     Dates: start: 20130620, end: 20130806
  6. FEBURIC [Suspect]
     Indication: ADVERSE REACTION
     Dosage: 10 MG, QD
     Route: 048
     Dates: start: 20130807, end: 20130812

REACTIONS (2)
  - Drug eruption [Recovered/Resolved]
  - Hyperuricaemia [Recovered/Resolved]
